FAERS Safety Report 25278897 (Version 3)
Quarter: 2025Q4

REPORT INFORMATION
  Report Type: Report from Study
  Country: GB (occurrence: GB)
  Receive Date: 20250507
  Receipt Date: 20251229
  Transmission Date: 20260118
  Serious: Yes (Hospitalization, Other)
  Sender: PFIZER
  Company Number: GB-PFIZER INC-PV202500026866

PATIENT
  Age: 63 Year
  Sex: Female

DRUGS (1)
  1. XELJANZ [Suspect]
     Active Substance: TOFACITINIB CITRATE
     Indication: Rheumatoid arthritis
     Dosage: 5 MG, 2X/DAY
     Route: 048
     Dates: end: 2025

REACTIONS (5)
  - Sepsis [Unknown]
  - Cellulitis [Recovered/Resolved]
  - Lymphoedema [Unknown]
  - Chills [Unknown]
  - Skin ulcer [Unknown]

NARRATIVE: CASE EVENT DATE: 20250101
